FAERS Safety Report 6358612-4 (Version None)
Quarter: 2009Q3

REPORT INFORMATION
  Report Type: 
  Country: None (occurrence: None)
  Receive Date: 20090914
  Receipt Date: 20090828
  Transmission Date: 20100115
  Serious: Yes (Other)
  Sender: FDA-Public Use
  Company Number: 2009AL001459

PATIENT
  Age: 82 Year
  Sex: Female

DRUGS (34)
  1. DIGOXIN [Suspect]
     Dosage: PO
     Route: 048
  2. ATENOLOL [Concomitant]
  3. COUMADIN [Concomitant]
  4. CYMBALTA [Concomitant]
  5. FAMOTIDINE [Concomitant]
  6. ISOSORBIDE [Concomitant]
  7. MONONITRATE [Concomitant]
  8. LASIX [Concomitant]
  9. LISINOPRIL [Concomitant]
  10. ENDOCERT [Concomitant]
  11. REQUIP [Concomitant]
  12. ALDACTONE [Concomitant]
  13. VICODIN [Concomitant]
  14. VYTORIN [Concomitant]
  15. CHOLESTYRAMINE LIGHT [Concomitant]
  16. CRESTOR [Concomitant]
  17. K-DUR POTASSIUM [Concomitant]
  18. LIPITOR [Concomitant]
  19. SPIRONOLACTONE [Concomitant]
  20. TRAMADOL [Concomitant]
  21. WARFARIN [Concomitant]
  22. ZETIA [Concomitant]
  23. ADVIL [Concomitant]
  24. ASPIRIN [Concomitant]
  25. ASPIRIN [Concomitant]
  26. BIO-MEGA3 [Concomitant]
  27. CRANBERRY EXTRACT [Concomitant]
  28. FERRAMIN [Concomitant]
  29. HEPASIL DTX [Concomitant]
  30. SUDAFED 12 HOUR [Concomitant]
  31. TUMS WITH CALCIUM [Concomitant]
  32. VITAMIN D [Concomitant]
  33. METOPROLOL [Concomitant]
  34. GLIMEPIRIDE [Concomitant]

REACTIONS (23)
  - ANHEDONIA [None]
  - ANXIETY [None]
  - ASTHENIA [None]
  - ATRIOVENTRICULAR BLOCK [None]
  - BLOOD PRESSURE FLUCTUATION [None]
  - BRADYCARDIA [None]
  - CONVULSION [None]
  - DEPRESSION [None]
  - DIARRHOEA [None]
  - DRUG TOXICITY [None]
  - FATIGUE [None]
  - HEART RATE IRREGULAR [None]
  - INJURY [None]
  - NAUSEA [None]
  - OEDEMA [None]
  - PALPITATIONS [None]
  - PROCTALGIA [None]
  - RENAL IMPAIRMENT [None]
  - SICK SINUS SYNDROME [None]
  - THERAPEUTIC AGENT TOXICITY [None]
  - TREATMENT NONCOMPLIANCE [None]
  - VISUAL IMPAIRMENT [None]
  - VOMITING [None]
